FAERS Safety Report 14492701 (Version 1)
Quarter: 2018Q1

REPORT INFORMATION
  Report Type: Spontaneous
  Country: US (occurrence: US)
  Receive Date: 20180206
  Receipt Date: 20180206
  Transmission Date: 20180509
  Serious: No
  Sender: FDA-Public Use
  Company Number: US-JNJFOC-20171127006

PATIENT
  Age: 69 Year
  Sex: Female
  Weight: 74.84 kg

DRUGS (3)
  1. PEPCID AC MAXIMUM STRENGTH [Suspect]
     Active Substance: FAMOTIDINE
     Route: 065
  2. IMODIUM [Concomitant]
     Active Substance: LOPERAMIDE HYDROCHLORIDE
     Indication: DIARRHOEA
     Route: 065
  3. PEPCID AC MAXIMUM STRENGTH [Suspect]
     Active Substance: FAMOTIDINE
     Indication: GASTROOESOPHAGEAL REFLUX DISEASE
     Dosage: AROUND 24-OCT-2017
     Route: 065
     Dates: start: 201710

REACTIONS (2)
  - Dyspepsia [Not Recovered/Not Resolved]
  - Product label issue [Unknown]
